FAERS Safety Report 13147151 (Version 1)
Quarter: 2017Q1

REPORT INFORMATION
  Report Type: Spontaneous
  Country: GB (occurrence: GB)
  Receive Date: 20170125
  Receipt Date: 20170125
  Transmission Date: 20170428
  Serious: Yes (Other)
  Sender: FDA-Public Use
  Company Number: GB-AUROBINDO-AUR-APL-2017-10897

PATIENT
  Sex: Female

DRUGS (1)
  1. GABAPENTIN TABLETS 600MG [Suspect]
     Active Substance: GABAPENTIN
     Indication: PRODUCT USED FOR UNKNOWN INDICATION
     Dosage: 600 MG, UNK

REACTIONS (3)
  - Dysphagia [Unknown]
  - Malnutrition [Unknown]
  - Neoplasm malignant [Unknown]
